FAERS Safety Report 8052406-X (Version None)
Quarter: 2012Q1

REPORT INFORMATION
  Report Type: 
  Country: None (occurrence: None)
  Receive Date: 20120118
  Receipt Date: 20120116
  Transmission Date: 20120608
  Serious: Yes (Other)
  Sender: FDA-Public Use
  Company Number: IT-PFIZER INC-2012011840

PATIENT
  Age: 64 Year
  Sex: Male

DRUGS (1)
  1. XANAX [Suspect]
     Dosage: UNK

REACTIONS (1)
  - GASTRIC ULCER [None]
